FAERS Safety Report 8475527-6 (Version None)
Quarter: 2012Q2

REPORT INFORMATION
  Report Type: 
  Country: None (occurrence: None)
  Receive Date: 20120628
  Receipt Date: 20120621
  Transmission Date: 20120825
  Serious: Yes (Hospitalization, Other)
  Sender: FDA-Public Use
  Company Number: US-JNJFOC-20120512607

PATIENT
  Age: 80 Year
  Sex: Male

DRUGS (2)
  1. REMICADE [Suspect]
     Indication: PRODUCT USED FOR UNKNOWN INDICATION
     Route: 042
     Dates: start: 20080225
  2. REMICADE [Suspect]
     Route: 042

REACTIONS (5)
  - SQUAMOUS CELL CARCINOMA [None]
  - BRONCHITIS [None]
  - CARDIAC FAILURE CONGESTIVE [None]
  - SQUAMOUS CELL CARCINOMA OF SKIN [None]
  - INFECTION [None]
